FAERS Safety Report 15855366 (Version 2)
Quarter: 2019Q1

REPORT INFORMATION
  Report Type: Spontaneous
  Country: IL (occurrence: IL)
  Receive Date: 20190122
  Receipt Date: 20190208
  Transmission Date: 20190417
  Serious: Yes (Death)
  Sender: FDA-Public Use
  Company Number: IL-OTSUKA-2019_000290

PATIENT
  Age: 4 Year
  Sex: Male

DRUGS (4)
  1. DACOGEN [Suspect]
     Active Substance: DECITABINE
     Indication: NEUROBLASTOMA
     Dosage: UNK
     Route: 042
     Dates: start: 201812
  2. TEMODAR [Concomitant]
     Active Substance: TEMOZOLOMIDE
     Indication: NEUROBLASTOMA
     Dosage: UNK
     Route: 065
  3. ZYKADIA [Concomitant]
     Active Substance: CERITINIB
     Indication: NEUROBLASTOMA
     Dosage: UNK
     Route: 065
  4. PANOBINOSTAT [Concomitant]
     Active Substance: PANOBINOSTAT
     Indication: NEUROBLASTOMA
     Dosage: UNK
     Route: 065

REACTIONS (8)
  - Asthenia [Unknown]
  - Electrolyte imbalance [Unknown]
  - Off label use [Unknown]
  - Nausea [Unknown]
  - Neuroblastoma [Fatal]
  - Somnolence [Unknown]
  - Product use issue [Unknown]
  - Product use in unapproved indication [Unknown]
